FAERS Safety Report 6156735-6 (Version None)
Quarter: 2009Q2

REPORT INFORMATION
  Report Type: 
  Country: None (occurrence: None)
  Receive Date: 20090416
  Receipt Date: 20090410
  Transmission Date: 20091009
  Serious: Yes (Hospitalization)
  Sender: FDA-Public Use
  Company Number: JP-WYE-H08778309

PATIENT
  Sex: Female

DRUGS (2)
  1. HYPEN [Suspect]
     Indication: RHEUMATOID ARTHRITIS
     Route: 048
     Dates: start: 20090306, end: 20090315
  2. CETRAXATE HYDROCHLORIDE [Concomitant]
     Indication: GASTRITIS
     Route: 048
     Dates: start: 20090306, end: 20090315

REACTIONS (1)
  - RASH GENERALISED [None]
